FAERS Safety Report 8547886 (Version 3)
Quarter: 2014Q1

REPORT INFORMATION
  Report Type: Spontaneous
  Country: US (occurrence: US)
  Receive Date: 20120504
  Receipt Date: 20140307
  Transmission Date: 20141002
  Serious: No
  Sender: FDA-Public Use
  Company Number: US-B.I. PHARMACEUTICALS,INC./RIDGEFIELD-2012-BP-09689BP

PATIENT
  Age: 75 Year
  Sex: Female
  Weight: 61.24 kg

DRUGS (21)
  1. PRADAXA [Suspect]
     Indication: ATRIAL FIBRILLATION
     Dosage: 300 MG
     Route: 048
     Dates: start: 20120425
  2. LOVASTATIN [Concomitant]
     Indication: BLOOD CHOLESTEROL INCREASED
     Dosage: 80 MG
     Route: 048
     Dates: start: 2008
  3. LOVASTATIN [Concomitant]
     Dosage: 80 MG
     Route: 048
  4. AMITRIPTYLINE [Concomitant]
     Indication: INSOMNIA
     Dosage: 5 MG
     Route: 048
     Dates: start: 2011
  5. AMITRIPTYLINE [Concomitant]
     Indication: HYPERTONIC BLADDER
  6. MULTIVITAMIN [Concomitant]
     Indication: ROUTINE HEALTH MAINTENANCE
     Dosage: 1 NR
     Route: 048
     Dates: start: 1982
  7. CALCIUM [Concomitant]
     Indication: ROUTINE HEALTH MAINTENANCE
     Dosage: 750 MG
     Route: 048
     Dates: start: 2006
  8. VITAMIN C [Concomitant]
     Indication: ROUTINE HEALTH MAINTENANCE
     Dosage: 1000 MG
     Route: 048
     Dates: start: 1982
  9. FLUOCINONIDE [Concomitant]
     Indication: FOLLICULITIS
     Route: 061
     Dates: start: 2006
  10. AMOXICILLIN [Concomitant]
     Indication: MITRAL VALVE PROLAPSE
     Dosage: 2000 MG
     Route: 048
     Dates: start: 1992
  11. GAS EX [Concomitant]
     Indication: FLATULENCE
     Route: 048
     Dates: start: 20120102
  12. IMMODIUM [Concomitant]
     Indication: DIARRHOEA
     Route: 048
     Dates: start: 2006
  13. FISH OIL [Concomitant]
     Indication: ROUTINE HEALTH MAINTENANCE
     Dosage: 750 MG
     Route: 048
     Dates: start: 20120407
  14. FOLIC ACID [Concomitant]
     Indication: ROUTINE HEALTH MAINTENANCE
     Dosage: 400 MCG
     Route: 048
     Dates: start: 2009
  15. POTASSIUM [Concomitant]
     Indication: MUSCLE SPASMS
     Dosage: 550 MG
     Route: 048
     Dates: start: 20120102
  16. POTASSIUM [Concomitant]
     Indication: MUSCLE SPASMS
  17. VITAMIN B COMPLEX [Concomitant]
     Indication: ROUTINE HEALTH MAINTENANCE
     Dosage: 1 NR
     Route: 048
     Dates: start: 2010
  18. VITAMIN D3 [Concomitant]
     Indication: ROUTINE HEALTH MAINTENANCE
     Dosage: 5000 U
     Route: 048
     Dates: start: 2011
  19. ATENOLOL [Concomitant]
     Indication: HYPERTENSION
     Dosage: 12.5 MG
     Route: 048
  20. GABAPENTIN [Concomitant]
     Dosage: 2700 MG
     Route: 048
  21. METFORMIN [Concomitant]
     Indication: TYPE 2 DIABETES MELLITUS
     Dosage: 1000 MG
     Route: 048

REACTIONS (7)
  - Fatigue [Not Recovered/Not Resolved]
  - Abdominal pain upper [Not Recovered/Not Resolved]
  - Flatulence [Not Recovered/Not Resolved]
  - Fatigue [Not Recovered/Not Resolved]
  - Blood pressure abnormal [Recovered/Resolved]
  - Atrial fibrillation [Recovered/Resolved]
  - Arthritis [Not Recovered/Not Resolved]
